FAERS Safety Report 8026574 (Version 2)
Quarter: 2012Q4

REPORT INFORMATION
  Report Type: 
  Country: US (occurrence: US)
  Receive Date: 20110708
  Receipt Date: 20121031
  Transmission Date: 20130627
  Serious: Yes (Other)
  Sender: FDA-Public Use
  Company Number: US-ROCHE-787585

PATIENT
  Age: 27 Year
  Sex: Female

DRUGS (5)
  1. ACCUTANE [Suspect]
     Indication: ACNE
     Dosage: In 1987 or 1988
     Route: 065
  2. ACCUTANE [Suspect]
     Dosage: in early 1990s
     Route: 065
  3. ACCUTANE [Suspect]
     Route: 065
  4. ACCUTANE [Suspect]
     Dosage: in 1998 or 1999
     Route: 065
  5. ORTHO-NOVUM [Concomitant]

REACTIONS (9)
  - Injury [Unknown]
  - Irritable bowel syndrome [Unknown]
  - Depression [Unknown]
  - Panic attack [Unknown]
  - Dry skin [Unknown]
  - Chapped lips [Unknown]
  - Blood cholesterol increased [Unknown]
  - Blood triglycerides increased [Unknown]
  - Acne [Unknown]
